FAERS Safety Report 6652853-4 (Version None)
Quarter: 2010Q1

REPORT INFORMATION
  Report Type: 
  Country: None (occurrence: None)
  Receive Date: 20100326
  Receipt Date: 20100324
  Transmission Date: 20100710
  Serious: Yes (Death)
  Sender: FDA-Public Use
  Company Number: JP-ASTRAZENECA-2010SE08863

PATIENT
  Sex: Male
  Weight: 58 kg

DRUGS (7)
  1. IRESSA [Suspect]
     Indication: LARGE CELL CARCINOMA OF THE RESPIRATORY TRACT STAGE UNSPECIFIED
     Route: 048
     Dates: start: 20020724
  2. LOXONIN [Concomitant]
     Indication: PAIN
     Route: 048
     Dates: start: 20020320
  3. CYTOTEC [Concomitant]
     Indication: PROPHYLAXIS AGAINST GASTROINTESTINAL ULCER
     Route: 048
     Dates: start: 20020320
  4. MS CONTIN [Concomitant]
     Indication: PAIN
     Route: 048
     Dates: start: 20020626
  5. PROCHLORPERAZINE [Concomitant]
     Indication: PAIN
     Route: 048
     Dates: start: 20020626
  6. GLYSENNID [Concomitant]
     Indication: CONSTIPATION PROPHYLAXIS
     Route: 048
     Dates: start: 20020626
  7. BROCIN CODEINE [Concomitant]
     Indication: COUGH
     Route: 048
     Dates: start: 20020626

REACTIONS (1)
  - LUNG DISORDER [None]
